FAERS Safety Report 10676378 (Version 1)
Quarter: 2014Q4

REPORT INFORMATION
  Report Type: Spontaneous
  Country: US (occurrence: US)
  Receive Date: 20141226
  Receipt Date: 20141226
  Transmission Date: 20150529
  Serious: Yes (Other)
  Sender: FDA-Public Use
  Company Number: US-AUROBINDO-AUR-APL-2014-13196

PATIENT
  Sex: Female

DRUGS (1)
  1. ALENDRONATE SODIUM TABLETS [Suspect]
     Active Substance: ALENDRONATE SODIUM
     Indication: PRODUCT USED FOR UNKNOWN INDICATION
     Dosage: UNK
     Route: 048
     Dates: start: 20141215

REACTIONS (6)
  - Nausea [Unknown]
  - Gastrooesophageal reflux disease [Unknown]
  - Swelling [Unknown]
  - Spinal pain [Unknown]
  - Oral discomfort [Unknown]
  - Pain in jaw [Unknown]

NARRATIVE: CASE EVENT DATE: 20141216
